FAERS Safety Report 18068630 (Version 2)
Quarter: 2020Q3

REPORT INFORMATION
  Report Type: Spontaneous
  Country: ES (occurrence: ES)
  Receive Date: 20200724
  Receipt Date: 20200911
  Transmission Date: 20201103
  Serious: No
  Sender: FDA-Public Use
  Company Number: ES-TOLMAR, INC.-20ES021886

PATIENT
  Sex: Male

DRUGS (2)
  1. ELIGARD [Suspect]
     Active Substance: LEUPROLIDE ACETATE
     Indication: PRODUCT USED FOR UNKNOWN INDICATION
     Dosage: 45 MG, Q 6 MONTH
     Route: 065
     Dates: start: 20200629
  2. ELIGARD [Suspect]
     Active Substance: LEUPROLIDE ACETATE
     Dosage: 45 MG, Q 6 MONTH
     Route: 065

REACTIONS (4)
  - Wrong technique in product usage process [None]
  - Circumstance or information capable of leading to medication error [None]
  - Intercepted product preparation error [None]
  - Product quality issue [None]

NARRATIVE: CASE EVENT DATE: 20200629
